FAERS Safety Report 9393952 (Version 1)
Quarter: 2013Q3

REPORT INFORMATION
  Report Type: Spontaneous
  Country: US (occurrence: US)
  Receive Date: 20130710
  Receipt Date: 20130710
  Transmission Date: 20140515
  Serious: No
  Sender: FDA-Public Use
  Company Number: US-009507513-1307USA001701

PATIENT
  Sex: Male

DRUGS (2)
  1. COPPPERTONE SPORT CLEAR CONTINUOUS SPRAY SUNSCREEN SPF-50 [Suspect]
     Indication: PRODUCT USED FOR UNKNOWN INDICATION
     Dosage: UNK, UNKNOWN
     Route: 061
  2. COPPPERTONE SPORT CLEAR CONTINUOUS SPRAY SUNSCREEN SPF-50 [Suspect]
     Dosage: UNK, UNKNOWN
     Route: 061

REACTIONS (3)
  - Pruritus [Unknown]
  - Urticaria [Unknown]
  - Accidental exposure to product [Unknown]
